FAERS Safety Report 9054740 (Version 1)
Quarter: 2013Q1

REPORT INFORMATION
  Report Type: Report from Study
  Country: FR (occurrence: FR)
  Receive Date: 20130208
  Receipt Date: 20130208
  Transmission Date: 20140127
  Serious: Yes (Other)
  Sender: FDA-Public Use
  Company Number: FR-AMGEN-FRACT2010008431

PATIENT
  Sex: Male

DRUGS (6)
  1. DARBEPOETIN ALFA [Suspect]
     Indication: CARDIAC FAILURE
     Dates: start: 20100608, end: 20101109
  2. TRIATEC                            /00116401/ [Concomitant]
     Dosage: UNK UNK, QD
     Route: 048
  3. CARDENSIEL [Concomitant]
     Dosage: 10 MG, QD
     Route: 048
  4. LASILIX                            /00032601/ [Concomitant]
     Dosage: UNK UNK, QD
     Route: 048
  5. TAHOR [Concomitant]
     Dosage: 20 MG, QD
     Route: 048
  6. KARDEGIC                           /00002703/ [Concomitant]
     Dosage: UNK UNK, QD
     Route: 048

REACTIONS (1)
  - Prurigo [Not Recovered/Not Resolved]
